FAERS Safety Report 25139544 (Version 3)
Quarter: 2025Q2

REPORT INFORMATION
  Report Type: Spontaneous
  Country: US (occurrence: US)
  Receive Date: 20250331
  Receipt Date: 20250506
  Transmission Date: 20250717
  Serious: No
  Sender: CSL BEHRING
  Company Number: US-BEH-2025200008

PATIENT
  Sex: Female

DRUGS (22)
  1. HIZENTRA [Suspect]
     Active Substance: HUMAN IMMUNOGLOBULIN G
     Indication: Immunodeficiency common variable
     Dosage: 4 G/20ML, QW
     Route: 058
     Dates: start: 20241105
  2. HIZENTRA [Suspect]
     Active Substance: HUMAN IMMUNOGLOBULIN G
     Dosage: 8 G, QW
     Route: 058
     Dates: start: 20241105
  3. HIZENTRA [Suspect]
     Active Substance: HUMAN IMMUNOGLOBULIN G
     Route: 065
     Dates: start: 202410
  4. ALBUTEROL [Concomitant]
     Active Substance: ALBUTEROL
  5. ALEVE [Concomitant]
     Active Substance: NAPROXEN SODIUM
  6. ALLEGRA ALLERGY [Concomitant]
     Active Substance: FEXOFENADINE HYDROCHLORIDE
  7. BACTRIM [Concomitant]
     Active Substance: SULFAMETHOXAZOLE\TRIMETHOPRIM
  8. BENADRYL [Concomitant]
     Active Substance: DIPHENHYDRAMINE HYDROCHLORIDE
  9. BUPROPION [Concomitant]
     Active Substance: BUPROPION
  10. HYDROCHLOROTHIAZIDE [Concomitant]
     Active Substance: HYDROCHLOROTHIAZIDE
  11. KETOROLAC [Concomitant]
     Active Substance: KETOROLAC TROMETHAMINE
  12. THYROID [Concomitant]
     Active Substance: LEVOTHYROXINE\LIOTHYRONINE
  13. OXYBUTYNIN [Concomitant]
     Active Substance: OXYBUTYNIN
  14. PEPCID AC [Concomitant]
     Active Substance: FAMOTIDINE
  15. PIROXICAM [Concomitant]
     Active Substance: PIROXICAM
  16. QVAR [Concomitant]
     Active Substance: BECLOMETHASONE DIPROPIONATE
  17. SINGULAIR [Concomitant]
     Active Substance: MONTELUKAST SODIUM
  18. TAMSULOSIN [Concomitant]
     Active Substance: TAMSULOSIN
  19. TRAMADOL HCL [Concomitant]
     Active Substance: TRAMADOL HYDROCHLORIDE
  20. TRELEGY ELLIPTA [Concomitant]
     Active Substance: FLUTICASONE FUROATE\UMECLIDINIUM BROMIDE\VILANTEROL TRIFENATATE
  21. TYLENOL [Concomitant]
     Active Substance: ACETAMINOPHEN
  22. ZYRTEC [Concomitant]
     Active Substance: CETIRIZINE HYDROCHLORIDE

REACTIONS (9)
  - Infusion site nodule [Not Recovered/Not Resolved]
  - Infusion site pruritus [Not Recovered/Not Resolved]
  - Infusion site urticaria [Not Recovered/Not Resolved]
  - Adverse reaction [Not Recovered/Not Resolved]
  - Weight increased [Not Recovered/Not Resolved]
  - Therapy change [Not Recovered/Not Resolved]
  - Infusion site erythema [Not Recovered/Not Resolved]
  - Drug intolerance [Not Recovered/Not Resolved]
  - Infusion site rash [Not Recovered/Not Resolved]
